FAERS Safety Report 5837438-1 (Version None)
Quarter: 2008Q3

REPORT INFORMATION
  Report Type: 
  Country: None (occurrence: None)
  Receive Date: 20080807
  Receipt Date: 20080731
  Transmission Date: 20090109
  Serious: Yes (Hospitalization)
  Sender: FDA-Public Use
  Company Number: US-BOEHRINGER INGELHEIM GMBH, GERMANY-2008-DE-04536GD

PATIENT
  Age: 38 Year
  Sex: Male

DRUGS (21)
  1. MORPHINE [Suspect]
     Indication: AUTONOMIC NERVOUS SYSTEM IMBALANCE
     Dosage: 2 - 4 MG
  2. MORPHINE [Suspect]
     Indication: DYSTONIA
  3. CLONIDINE [Suspect]
     Indication: AUTONOMIC NERVOUS SYSTEM IMBALANCE
  4. CLONIDINE [Suspect]
     Indication: DYSTONIA
  5. PROPOFOL [Suspect]
     Indication: AUTONOMIC NERVOUS SYSTEM IMBALANCE
     Dosage: 300 MG/H
  6. PROPOFOL [Suspect]
     Indication: DYSTONIA
     Dosage: 200 MG/H
  7. PROPOFOL [Suspect]
     Indication: SEDATIVE THERAPY
  8. FENTANYL CITRATE [Suspect]
     Indication: AUTONOMIC NERVOUS SYSTEM IMBALANCE
     Dosage: 170 MCG/H
  9. FENTANYL CITRATE [Suspect]
     Indication: DYSTONIA
     Dosage: 75 MG/H
  10. FENTANYL CITRATE [Suspect]
     Indication: SEDATIVE THERAPY
  11. LORAZEPAM [Suspect]
     Indication: AUTONOMIC NERVOUS SYSTEM IMBALANCE
  12. LORAZEPAM [Suspect]
     Indication: DYSTONIA
  13. LABETALOL HCL [Suspect]
     Indication: AUTONOMIC NERVOUS SYSTEM IMBALANCE
     Dosage: STARTED AT 50 MG/H CHANGED WITHIN 24 H TO MAXIMUM DOSAGE OF 120 MG/H
  14. LABETALOL HCL [Suspect]
     Indication: DYSTONIA
  15. METOPROLOL SUCCINATE [Suspect]
     Indication: AUTONOMIC NERVOUS SYSTEM IMBALANCE
  16. METOPROLOL SUCCINATE [Suspect]
     Indication: DYSTONIA
  17. MIDAZOLAM HCL [Suspect]
     Indication: AUTONOMIC NERVOUS SYSTEM IMBALANCE
     Dosage: 5 MG/H
  18. MIDAZOLAM HCL [Suspect]
     Indication: DYSTONIA
  19. MANNITOL [Concomitant]
     Indication: INTRACRANIAL PRESSURE INCREASED
  20. HYPERTONIC SALINE [Concomitant]
     Indication: INTRACRANIAL PRESSURE INCREASED
  21. ANTIBIOTICS [Concomitant]
     Indication: HYPERTHERMIA

REACTIONS (1)
  - DRUG INEFFECTIVE [None]
